FAERS Safety Report 9629535 (Version 1)
Quarter: 2013Q4

REPORT INFORMATION
  Report Type: Report from Study
  Country: DE (occurrence: DE)
  Receive Date: 20131017
  Receipt Date: 20131017
  Transmission Date: 20140711
  Serious: No
  Sender: FDA-Public Use
  Company Number: PHHY2013DE115255

PATIENT
  Sex: Male
  Weight: 75 kg

DRUGS (6)
  1. AMN107 [Suspect]
     Indication: CHRONIC MYELOID LEUKAEMIA
     Dosage: 800 MG, PER DAY
     Route: 048
     Dates: start: 20110222
  2. OMNIC [Concomitant]
     Dosage: UNK
  3. PANTOZOL [Concomitant]
     Dosage: UNK
     Dates: start: 20110324
  4. LEVOFLOXACIN [Concomitant]
     Dosage: UNK
     Dates: start: 201206, end: 201206
  5. RHINISAN [Concomitant]
     Dosage: UNK
     Dates: start: 20120112
  6. MAGNESIUM [Concomitant]
     Dosage: UNK
     Dates: start: 20130124

REACTIONS (1)
  - Sinusitis [Not Recovered/Not Resolved]
